FAERS Safety Report 7938123-2 (Version None)
Quarter: 2011Q4

REPORT INFORMATION
  Report Type: 
  Country: None (occurrence: None)
  Receive Date: 20111123
  Receipt Date: 20110818
  Transmission Date: 20120403
  Serious: No
  Sender: FDA-Public Use
  Company Number: US-BRISTOL-MYERS SQUIBB COMPANY-15985336

PATIENT
  Age: 59 Year
  Sex: Female
  Weight: 91 kg

DRUGS (6)
  1. PRILOSEC [Concomitant]
  2. CLARITIN [Concomitant]
  3. ONGLYZA [Suspect]
  4. COREG [Concomitant]
  5. DIOVAN HCT [Concomitant]
  6. SIMVASTATIN [Concomitant]

REACTIONS (1)
  - NAUSEA [None]
